FAERS Safety Report 6944893-2 (Version None)
Quarter: 2010Q3

REPORT INFORMATION
  Report Type: 
  Country: None (occurrence: None)
  Receive Date: 20100827
  Receipt Date: 20100817
  Transmission Date: 20110219
  Serious: Yes (Other)
  Sender: FDA-Public Use
  Company Number: FR-SANOFI-AVENTIS-2010SA048654

PATIENT
  Age: 76 Year
  Sex: Male

DRUGS (10)
  1. LOVENOX [Suspect]
     Route: 058
     Dates: start: 20100629
  2. AUGMENTIN '125' [Suspect]
     Indication: BRONCHITIS
     Route: 048
     Dates: start: 20100620, end: 20100628
  3. ROCEPHIN [Suspect]
     Route: 042
     Dates: start: 20100629, end: 20100705
  4. AMOXICILLIN [Suspect]
     Route: 042
     Dates: start: 20100629, end: 20100706
  5. DEXAMETHASONE PHOSPHATE [Suspect]
     Route: 042
     Dates: start: 20100629, end: 20100702
  6. SOTALEX [Concomitant]
     Indication: MYOCARDIAL INFARCTION
     Route: 065
  7. TAHOR [Concomitant]
     Route: 048
  8. KARDEGIC [Concomitant]
     Indication: MYOCARDIAL INFARCTION
     Route: 065
  9. ODRIK [Concomitant]
     Indication: MYOCARDIAL INFARCTION
     Route: 048
  10. PERFALGAN [Concomitant]
     Route: 042
     Dates: start: 20100629

REACTIONS (2)
  - GAMMA-GLUTAMYLTRANSFERASE INCREASED [None]
  - TRANSAMINASES INCREASED [None]
